FAERS Safety Report 18648339 (Version 1)
Quarter: 2020Q4

REPORT INFORMATION
  Report Type: Spontaneous
  Country: US (occurrence: US)
  Receive Date: 20201222
  Receipt Date: 20201222
  Transmission Date: 20210114
  Serious: Yes (Hospitalization, Other)
  Sender: FDA-Public Use
  Company Number: US-ELI_LILLY_AND_COMPANY-US202012009736

PATIENT
  Age: 59 Year
  Sex: Female

DRUGS (2)
  1. HUMALOG KWIKPEN [Suspect]
     Active Substance: INSULIN LISPRO
     Indication: DIABETES MELLITUS
     Dosage: 15 U, OTHER (BEFORE EACH MEAL)
     Route: 058
     Dates: start: 202010
  2. HUMALOG [Suspect]
     Active Substance: INSULIN LISPRO
     Indication: DIABETES MELLITUS
     Dosage: 15 U, OTHER (BEFORE EACH MEAL)
     Route: 058

REACTIONS (4)
  - Visual impairment [Unknown]
  - Blood glucose increased [Unknown]
  - COVID-19 [Unknown]
  - Endometrial cancer [Unknown]

NARRATIVE: CASE EVENT DATE: 20201005
